FAERS Safety Report 10260873 (Version 2)
Quarter: 2014Q2

REPORT INFORMATION
  Report Type: Report from Study
  Country: US (occurrence: US)
  Receive Date: 20140626
  Receipt Date: 20140626
  Transmission Date: 20141212
  Serious: Yes (Hospitalization, Other)
  Sender: FDA-Public Use
  Company Number: PHEH2014US010797

PATIENT
  Age: 21 Year
  Sex: Female
  Weight: 109 kg

DRUGS (27)
  1. TOBI [Suspect]
     Indication: CYSTIC FIBROSIS
     Dosage: 300 MG/5 ML, BID (28 DAYS ON AND 28 DAYS OFF)
     Route: 055
  2. TOBI [Suspect]
     Indication: LUNG DISORDER
     Dosage: 300 MG, (28 DAYS ON AND 28 DAYS OFF)
     Route: 055
  3. TOBI [Suspect]
     Indication: PSEUDOMONAS INFECTION
  4. PROAIR [Concomitant]
  5. ALBUTEROL [Concomitant]
     Dosage: 108 UG, UNK
  6. ZITHROMAX [Concomitant]
     Dosage: 500 MG, UNK,MONDAYJWEDNESDAY/FRLDAY
     Route: 048
  7. VITAMIN D3 [Concomitant]
     Dosage: 1 DF, DAILY
  8. PULMOZYME [Concomitant]
     Dosage: 2.5 MG, DAILY
     Route: 055
  9. AQUADEKS [Concomitant]
     Dosage: 2 DF, DAILY
     Route: 048
  10. CREON [Concomitant]
     Dosage: 6 DF, TID (TAKE 6 CAPSULES BY MOUTH 3 TIMES DALLY WITH MEAL)
     Route: 048
  11. PROTONIX [Concomitant]
     Dosage: 1 DF, DAILY
     Route: 048
  12. ZOLOFT [Concomitant]
     Dosage: 3 DF, (3 TABLETS BY MOUTH EVERY EVENING.)
     Route: 048
  13. HYPERTONIC SALINE SOLUTION [Concomitant]
     Dosage: 4 ML, BID
     Route: 055
  14. TOBI PODHALER [Concomitant]
     Dosage: 4 DF, BID
     Route: 055
  15. ALBUTEROL HFA [Concomitant]
     Dosage: UNK
  16. FLAGYL [Concomitant]
     Dosage: 500 MG, UNK
  17. AUGMENTINE [Concomitant]
     Dosage: UNK (875?125) MG
  18. COLACE [Concomitant]
     Dosage: 50 MG, UNK
     Route: 048
  19. FLONASE [Concomitant]
     Dosage: UNK
     Route: 045
  20. INFLUENZA VACCINE [Concomitant]
     Dosage: UNK
     Route: 023
     Dates: start: 20111010
  21. PNEUMOCOCCAL POLYSACCHARIDE VACCINE [Concomitant]
     Dosage: UNK
     Dates: start: 20111020
  22. TETANUS VACCINE [Concomitant]
     Dosage: UNK
     Dates: start: 20000121
  23. IMIPENEM [Concomitant]
     Dosage: UNK
  24. OSELTAMIVIR [Concomitant]
     Dosage: 75 MG, BID
  25. VANCOMYCIN [Concomitant]
     Dosage: 1.5 G, Q8H
  26. PANCRELIPASE [Concomitant]
     Indication: CYSTIC FIBROSIS
     Dosage: 144000 U, TID
  27. VITAMIN D [Concomitant]
     Indication: CYSTIC FIBROSIS
     Dosage: 5000 U, QD

REACTIONS (38)
  - Pancreatic insufficiency [Unknown]
  - Gastrooesophageal reflux disease [Unknown]
  - Lung infiltration [Unknown]
  - Fibroadenoma of breast [Unknown]
  - Mycobacterium kansasii infection [Unknown]
  - Bronchiectasis [Unknown]
  - Nasal polyps [Unknown]
  - Dyspepsia [Unknown]
  - Vitamin D deficiency [Unknown]
  - White blood cell count increased [Not Recovered/Not Resolved]
  - Neutrophil count increased [Recovered/Resolved]
  - Blood glucose decreased [Recovered/Resolved]
  - Blood osmolarity decreased [Recovered/Resolved]
  - Carbon dioxide decreased [Recovered/Resolved]
  - Lymphocyte count increased [Not Recovered/Not Resolved]
  - Monocyte count increased [Recovered/Resolved]
  - Eosinophil count increased [Not Recovered/Not Resolved]
  - Haemoglobin decreased [Recovered/Resolved]
  - Antibiotic level below therapeutic [Not Recovered/Not Resolved]
  - Blood calcium decreased [Recovered/Resolved]
  - Blood urea decreased [Not Recovered/Not Resolved]
  - Blood magnesium decreased [Unknown]
  - Condition aggravated [Recovered/Resolved]
  - Chronic sinusitis [Recovering/Resolving]
  - Pyrexia [Unknown]
  - Night sweats [Unknown]
  - Cystic fibrosis [Recovered/Resolved]
  - Dyspnoea [Unknown]
  - Productive cough [Unknown]
  - Pleuritic pain [Unknown]
  - Sputum discoloured [Unknown]
  - Vital capacity decreased [Unknown]
  - Forced expiratory volume decreased [Unknown]
  - Forced expiratory flow decreased [Unknown]
  - Vomiting [Unknown]
  - Bacterial infection [Unknown]
  - Alcaligenes infection [Unknown]
  - Staphylococcal infection [Unknown]
